FAERS Safety Report 5154429-7 (Version None)
Quarter: 2006Q4

REPORT INFORMATION
  Report Type: 
  Country: None (occurrence: None)
  Receive Date: 20061114
  Receipt Date: 20061103
  Transmission Date: 20070319
  Serious: Yes (Hospitalization)
  Sender: FDA-Public Use
  Company Number: 2006135317

PATIENT
  Age: 69 Year
  Sex: Female

DRUGS (1)
  1. TOTALIP (ATORVASTATIN) [Suspect]
     Indication: HYPERCHOLESTEROLAEMIA
     Dosage: 20 MG 1 IN 1 D, ORAL
     Route: 048
     Dates: start: 20040511, end: 20050809

REACTIONS (2)
  - HEPATITIS [None]
  - MYOSITIS [None]
